FAERS Safety Report 14168965 (Version 3)
Quarter: 2017Q4

REPORT INFORMATION
  Report Type: Spontaneous
  Country: FI (occurrence: FI)
  Receive Date: 20171107
  Receipt Date: 20171211
  Transmission Date: 20180321
  Serious: Yes (Other)
  Sender: FDA-Public Use
  Company Number: FI-ABBVIE-17P-055-2156034-00

PATIENT
  Age: 43 Year
  Sex: Female

DRUGS (3)
  1. SODIUM VALPROATE [Suspect]
     Active Substance: VALPROATE SODIUM
     Indication: TEMPORAL LOBE EPILEPSY
     Route: 065
  2. LAMOTRIGINE. [Suspect]
     Active Substance: LAMOTRIGINE
     Indication: TEMPORAL LOBE EPILEPSY
     Route: 065
  3. CLONAZEPAM. [Suspect]
     Active Substance: CLONAZEPAM
     Indication: TEMPORAL LOBE EPILEPSY
     Route: 065

REACTIONS (4)
  - Obstructive airways disorder [Unknown]
  - Upper airway obstruction [Unknown]
  - Sleep disorder [Unknown]
  - Sleep apnoea syndrome [Unknown]
